FAERS Safety Report 7569188 (Version 4)
Quarter: 2012Q4

REPORT INFORMATION
  Report Type: 
  Country: US (occurrence: US)
  Receive Date: 20100901
  Receipt Date: 20121116
  Transmission Date: 20130627
  Serious: No
  Sender: FDA-Public Use
  Company Number: US-BIOGENIDEC-2010BI029968

PATIENT
  Age: 44 Year
  Sex: Female

DRUGS (2)
  1. TYSABRI [Suspect]
     Indication: MULTIPLE SCLEROSIS
     Route: 042
     Dates: start: 20100121
  2. REBIF [Concomitant]
     Indication: MULTIPLE SCLEROSIS

REACTIONS (13)
  - Hypoaesthesia [Not Recovered/Not Resolved]
  - Fall [Recovered/Resolved]
  - Fibula fracture [Recovered/Resolved]
  - Temperature intolerance [Recovered/Resolved]
  - Pain [Recovered/Resolved]
  - Frustration [Unknown]
  - Balance disorder [Not Recovered/Not Resolved]
  - Ankle fracture [Recovered/Resolved]
  - Gait disturbance [Not Recovered/Not Resolved]
  - Fatigue [Recovered/Resolved]
  - Muscular weakness [Unknown]
  - Central nervous system lesion [Unknown]
  - Arthralgia [Recovered/Resolved]
